FAERS Safety Report 4826614-2 (Version None)
Quarter: 2005Q4

REPORT INFORMATION
  Report Type: 
  Country: None (occurrence: None)
  Receive Date: 20051014
  Receipt Date: 20050909
  Transmission Date: 20060501
  Serious: No
  Sender: FDA-Public Use
  Company Number: 2005SP002754

PATIENT
  Age: 80 Year
  Sex: Male

DRUGS (4)
  1. LUNESTA [Suspect]
     Dosage: 2 MG; HS; UNKNOWN
     Route: 065
     Dates: start: 20050701, end: 20050905
  2. BETAPACE [Concomitant]
  3. SIMVASTATIN [Concomitant]
  4. CELEXA [Concomitant]

REACTIONS (2)
  - COUGH [None]
  - DRY THROAT [None]
